FAERS Safety Report 24593094 (Version 1)
Quarter: 2024Q4

REPORT INFORMATION
  Report Type: Spontaneous
  Country: CA (occurrence: CA)
  Receive Date: 20241108
  Receipt Date: 20241108
  Transmission Date: 20250114
  Serious: Yes (Other)
  Sender: BAYER HEALTHCARE PHARMACEUTICALS INC.
  Company Number: CA-BAYER-2024A158614

PATIENT
  Age: 66 Year
  Sex: Female

DRUGS (8)
  1. CIPROFLOXACIN [Suspect]
     Active Substance: CIPROFLOXACIN
  2. HYDROMORPHONE [Suspect]
     Active Substance: HYDROMORPHONE
  3. MAGNESIUM GLUCONATE [Suspect]
     Active Substance: MAGNESIUM GLUCONATE
     Route: 048
  4. ACETAMINOPHEN [Suspect]
     Active Substance: ACETAMINOPHEN
  5. PROCHLORPERAZINE [Suspect]
     Active Substance: PROCHLORPERAZINE
  6. APIXABAN [Suspect]
     Active Substance: APIXABAN
     Route: 048
  7. FOLIC ACID [Suspect]
     Active Substance: FOLIC ACID
  8. FERROUS FUMARATE [Suspect]
     Active Substance: FERROUS FUMARATE

REACTIONS (1)
  - Febrile neutropenia [Unknown]
